FAERS Safety Report 6925549-9 (Version None)
Quarter: 2010Q3

REPORT INFORMATION
  Report Type: 
  Country: None (occurrence: None)
  Receive Date: 20100816
  Receipt Date: 20100811
  Transmission Date: 20110219
  Serious: Yes (Hospitalization)
  Sender: FDA-Public Use
  Company Number: CO-ROCHE-720430

PATIENT
  Sex: Female

DRUGS (4)
  1. CELLCEPT [Suspect]
     Dosage: FREQUENCY:QD
     Route: 048
     Dates: start: 20090814, end: 20100409
  2. TACROLIMUS [Concomitant]
     Dosage: FREQUENCY: QD
     Route: 048
  3. PREDNISOLONE [Concomitant]
     Dosage: FREQUENCY: QD
     Route: 048
  4. OMEPRAZOLE [Concomitant]
     Dosage: FREQUENCY: QD
     Route: 048

REACTIONS (1)
  - RENAL MASS [None]
